FAERS Safety Report 7750479-2 (Version None)
Quarter: 2011Q3

REPORT INFORMATION
  Report Type: 
  Country: None (occurrence: None)
  Receive Date: 20110914
  Receipt Date: 20101126
  Transmission Date: 20111222
  Serious: Yes (Death, Hospitalization)
  Sender: FDA-Public Use
  Company Number: NZ-BAYER-201046734GPV

PATIENT
  Age: 45 Year
  Sex: Male
  Weight: 52 kg

DRUGS (8)
  1. BLINDED SORAFENIB (RAF KINASE INHIBITOR) [Suspect]
     Route: 048
     Dates: start: 20101110, end: 20101113
  2. FORTISIP [Concomitant]
     Dosage: 2 CANS
  3. FUROSEMIDE [Concomitant]
     Dosage: 20 MG (DAILY DOSE), ,
  4. SPIRONOLACTONE [Concomitant]
     Dosage: 100 MG (DAILY DOSE), ,
  5. MORPHINE [Concomitant]
     Indication: HEPATIC NEOPLASM MALIGNANT
     Dosage: 5 MG (DAILY DOSE), PRN,
  6. MORPHINE SULFATE [Concomitant]
     Dosage: 60 MG (DAILY DOSE), ,
  7. SORAFENIB [Suspect]
     Indication: HEPATIC NEOPLASM MALIGNANT
     Dosage: CYCLE 6
     Route: 048
     Dates: start: 20101110, end: 20101113
  8. SODIUM CHLORIDE [Concomitant]
     Dosage: 60 MG (DAILY DOSE), ,

REACTIONS (5)
  - CHEST PAIN [None]
  - ABDOMINAL DISTENSION [None]
  - HEPATIC HAEMORRHAGE [None]
  - ASCITES [None]
  - ABDOMINAL PAIN [None]
